FAERS Safety Report 5505054-7 (Version None)
Quarter: 2007Q4

REPORT INFORMATION
  Report Type: 
  Country: None (occurrence: None)
  Receive Date: 20071031
  Receipt Date: 20071031
  Transmission Date: 20080405
  Serious: No
  Sender: FDA-Public Use
  Company Number: None

PATIENT
  Sex: Female
  Weight: 88.4514 kg

DRUGS (2)
  1. ZOLPIDEM [Suspect]
     Indication: INSOMNIA
     Dosage: 10MG -1 TAB - BEFORE BEDTIME PO
     Route: 048
     Dates: start: 20060101, end: 20071030
  2. AMBIEN [Concomitant]

REACTIONS (6)
  - ABNORMAL SLEEP-RELATED EVENT [None]
  - AGGRESSION [None]
  - AMNESIA [None]
  - BINGE EATING [None]
  - SCREAMING [None]
  - SOMNAMBULISM [None]
